FAERS Safety Report 8787828 (Version 1)
Quarter: 2012Q4

REPORT INFORMATION
  Report Type: 
  Country: US (occurrence: US)
  Receive Date: 20120914
  Receipt Date: 20120914
  Transmission Date: 20130627
  Serious: No
  Sender: FDA-Public Use
  Company Number: US-VERTEX PHARMACEUTICAL INC.-AE-2012-005426

PATIENT
  Age: 58 Year
  Sex: Female
  Weight: 105.45 kg

DRUGS (5)
  1. INCIVEK [Suspect]
     Indication: HEPATITIS C
     Route: 048
     Dates: start: 20120301, end: 20120706
  2. RIBAPAK [Concomitant]
     Indication: HEPATITIS C
     Route: 048
     Dates: start: 20120301, end: 20120706
  3. PEGASYS [Concomitant]
     Indication: HEPATITIS C
     Route: 058
     Dates: start: 20120301, end: 20120706
  4. DIABETES PILL [Concomitant]
     Route: 048
  5. LOTREL (AMLODIPINE + BENAZEPRIL) [Concomitant]
     Indication: HYPERTENSION
     Route: 048

REACTIONS (12)
  - Insomnia [Unknown]
  - Eye irritation [Not Recovered/Not Resolved]
  - Eye pain [Not Recovered/Not Resolved]
  - Vision blurred [Not Recovered/Not Resolved]
  - Restlessness [Unknown]
  - Crying [Unknown]
  - Irritability [Unknown]
  - Carbuncle [Unknown]
  - Blood glucose increased [Unknown]
  - Emotional disorder [Not Recovered/Not Resolved]
  - Rash generalised [Not Recovered/Not Resolved]
  - Pruritus [Not Recovered/Not Resolved]
